FAERS Safety Report 7103323-0 (Version None)
Quarter: 2010Q4

REPORT INFORMATION
  Report Type: 
  Country: None (occurrence: None)
  Receive Date: 20101115
  Receipt Date: 20101102
  Transmission Date: 20110411
  Serious: Yes (Other)
  Sender: FDA-Public Use
  Company Number: US-BAYER-200942457NA

PATIENT
  Age: 60 Year
  Sex: Female
  Weight: 82 kg

DRUGS (12)
  1. MAGNEVIST [Suspect]
     Indication: NUCLEAR MAGNETIC RESONANCE IMAGING
     Dosage: AS USED: 40 ML
     Route: 042
     Dates: start: 20021104, end: 20021104
  2. MAGNEVIST [Suspect]
     Dosage: AS USED: 19 ML
     Dates: start: 20030714, end: 20030714
  3. OMNISCAN [Suspect]
     Indication: NUCLEAR MAGNETIC RESONANCE IMAGING
  4. UNSPECIFIED GADOLINIUM DYE [Suspect]
     Indication: NUCLEAR MAGNETIC RESONANCE IMAGING
     Dates: start: 20030714, end: 20030714
  5. UNSPECIFIED GADOLINIUM DYE [Suspect]
     Dates: start: 20070102, end: 20070102
  6. COUMADIN [Concomitant]
  7. AVAPRO [Concomitant]
  8. EPOGEN [Concomitant]
  9. PARICALCITOL [Concomitant]
  10. RENAGEL [Concomitant]
  11. MIRATIN [Concomitant]
  12. PLAQUENIL [Concomitant]

REACTIONS (4)
  - GENERALISED OEDEMA [None]
  - NEPHROGENIC SYSTEMIC FIBROSIS [None]
  - PAIN [None]
  - SKIN FIBROSIS [None]
